FAERS Safety Report 13828665 (Version 2)
Quarter: 2017Q3

REPORT INFORMATION
  Report Type: Report from Study
  Country: US (occurrence: US)
  Receive Date: 20170803
  Receipt Date: 20170824
  Transmission Date: 20171127
  Serious: Yes (Hospitalization)
  Sender: FDA-Public Use
  Company Number: US-BAYER-2017-130070

PATIENT
  Age: 49 Year
  Sex: Female
  Weight: 50.79 kg

DRUGS (4)
  1. LETAIRIS [Concomitant]
     Active Substance: AMBRISENTAN
     Dosage: UNK
  2. VELETRI [Concomitant]
     Active Substance: EPOPROSTENOL
     Dosage: UNK
  3. ADEMPAS [Suspect]
     Active Substance: RIOCIGUAT
     Indication: PULMONARY ARTERIAL HYPERTENSION
     Dosage: UNK
     Dates: start: 20170615
  4. ADEMPAS [Suspect]
     Active Substance: RIOCIGUAT
     Indication: PULMONARY ARTERIAL HYPERTENSION
     Dosage: 0.5 MG, TID
     Route: 048
     Dates: end: 201707

REACTIONS (11)
  - Gastric disorder [Unknown]
  - Nausea [Unknown]
  - Dehydration [None]
  - Renal failure [Unknown]
  - Right ventricular failure [Unknown]
  - Hospitalisation [None]
  - Vomiting [Unknown]
  - Adverse drug reaction [Unknown]
  - Diarrhoea [Unknown]
  - Fluid overload [None]
  - Weight increased [None]

NARRATIVE: CASE EVENT DATE: 20170817
